FAERS Safety Report 24570995 (Version 1)
Quarter: 2024Q4

REPORT INFORMATION
  Report Type: Report from Study
  Country: CA (occurrence: CA)
  Receive Date: 20241101
  Receipt Date: 20241101
  Transmission Date: 20250115
  Serious: Yes (Death, Hospitalization)
  Sender: ABBVIE
  Company Number: CA-ABBVIE-5922038

PATIENT
  Sex: Male

DRUGS (3)
  1. VENCLEXTA [Suspect]
     Active Substance: VENETOCLAX
     Indication: Acute myeloid leukaemia
     Dosage: LAST ADMIN DATE 2024?FORM STRENGTH: 100 MILLIGRAM?FREQUENCY TEXT: DAILY FOR 14 DAYS OF CYCLE
     Route: 048
     Dates: start: 20240328
  2. VENCLEXTA [Suspect]
     Active Substance: VENETOCLAX
     Indication: Acute myeloid leukaemia
     Route: 048
  3. AZACITIDINE [Concomitant]
     Active Substance: AZACITIDINE
     Indication: Product used for unknown indication

REACTIONS (3)
  - Neoplasm malignant [Fatal]
  - Platelet count decreased [Unknown]
  - Infection [Unknown]

NARRATIVE: CASE EVENT DATE: 20240101
